FAERS Safety Report 19800935 (Version 4)
Quarter: 2022Q1

REPORT INFORMATION
  Report Type: Report from Study
  Country: US (occurrence: US)
  Receive Date: 20210907
  Receipt Date: 20220120
  Transmission Date: 20220423
  Serious: No
  Sender: FDA-Public Use
  Company Number: US-NOVARTISTESTPH-NVSC2021US201060

PATIENT
  Sex: Male

DRUGS (1)
  1. ENTRESTO [Suspect]
     Active Substance: SACUBITRIL\VALSARTAN
     Indication: Cardiac failure chronic
     Dosage: 1 DOSAGE FORM
     Route: 065

REACTIONS (6)
  - Weight decreased [Unknown]
  - Visual impairment [Recovered/Resolved]
  - Blood glucose decreased [Unknown]
  - Illness [Unknown]
  - Ejection fraction abnormal [Unknown]
  - Nasopharyngitis [Unknown]
